FAERS Safety Report 22073243 (Version 2)
Quarter: 2023Q1

REPORT INFORMATION
  Report Type: Spontaneous
  Country: US (occurrence: US)
  Receive Date: 20230308
  Receipt Date: 20230322
  Transmission Date: 20230418
  Serious: No
  Sender: FDA-Public Use
  Company Number: US-GSK-US2023035799

PATIENT
  Sex: Female

DRUGS (1)
  1. BENLYSTA [Suspect]
     Active Substance: BELIMUMAB
     Indication: Systemic lupus erythematosus
     Dosage: 200 MG, WE

REACTIONS (8)
  - Oropharyngeal pain [Unknown]
  - Cough [Unknown]
  - Insomnia [Unknown]
  - Flushing [Unknown]
  - Pyrexia [Unknown]
  - Throat irritation [Unknown]
  - Tongue discomfort [Unknown]
  - Dysphonia [Unknown]
